FAERS Safety Report 19083303 (Version 3)
Quarter: 2021Q2

REPORT INFORMATION
  Report Type: Spontaneous
  Country: IT (occurrence: IT)
  Receive Date: 20210401
  Receipt Date: 20210427
  Transmission Date: 20210717
  Serious: Yes (Death, Hospitalization, Other)
  Sender: FDA-Public Use
  Company Number: IT-PFIZER INC-2021285575

PATIENT
  Age: 64 Year
  Sex: Male

DRUGS (20)
  1. ISAVUCONAZONIUM SULFATE [Suspect]
     Active Substance: ISAVUCONAZONIUM SULFATE
     Indication: PROPHYLAXIS
     Dosage: 200 MG, 3X/DAY(EVERY EIGHT HOURS)
     Route: 048
     Dates: start: 20200328, end: 20200329
  2. ISAVUCONAZONIUM SULFATE [Suspect]
     Active Substance: ISAVUCONAZONIUM SULFATE
     Dosage: 200 MG, 1X/DAY (ONCE DAILY)
     Dates: start: 20200330, end: 20200428
  3. MEROPENEM. [Suspect]
     Active Substance: MEROPENEM
     Indication: ANTIBIOTIC THERAPY
     Dosage: UNK
     Route: 065
  4. LETERMOVIR [Suspect]
     Active Substance: LETERMOVIR
     Indication: PROPHYLAXIS
     Dosage: UNK
     Route: 065
  5. REMDESIVIR. [Suspect]
     Active Substance: REMDESIVIR
     Indication: SUPPORTIVE CARE
     Dosage: 100 MG, 1X/DAY(Q24H)
  6. MYCOPHENOLATE [Suspect]
     Active Substance: MYCOPHENOLIC ACID
     Indication: COVID-19
     Dosage: UNK
  7. METHYLPREDNISOLONE. [Suspect]
     Active Substance: METHYLPREDNISOLONE
     Indication: COVID-19
     Dosage: 0.5 MG/KG
  8. MEROPENEM. [Suspect]
     Active Substance: MEROPENEM
     Indication: EVIDENCE BASED TREATMENT
  9. ACICLOVIR [Suspect]
     Active Substance: ACYCLOVIR
     Indication: PROPHYLAXIS
     Dosage: UNK
  10. DEFIBROTIDE [Suspect]
     Active Substance: DEFIBROTIDE (BOVINE)
     Indication: COVID-19
     Dosage: 6.25 MG/KG, 4X/DAY (25 MG/KG (6.25 MG/KG,1 IN 6 HR))
     Route: 042
  11. REMDESIVIR. [Suspect]
     Active Substance: REMDESIVIR
     Indication: COVID-19
  12. ATOVAQUONE. [Suspect]
     Active Substance: ATOVAQUONE
     Indication: PROPHYLAXIS
     Dosage: UNK
  13. AZITHROMYCIN ANHYDROUS. [Interacting]
     Active Substance: AZITHROMYCIN ANHYDROUS
     Indication: COVID-19
     Dosage: UNK
  14. DAPTOMYCIN. [Suspect]
     Active Substance: DAPTOMYCIN
     Indication: ANTIBIOTIC THERAPY
     Dosage: UNK
     Route: 065
  15. HYDROXYCHLOROQUINE [Interacting]
     Active Substance: HYDROXYCHLOROQUINE
     Indication: COVID-19
     Dosage: UNK
  16. LOPINAVIR/RITONAVIR [Suspect]
     Active Substance: LOPINAVIR\RITONAVIR
     Indication: COVID-19
     Dosage: UNK
  17. PIPERACILLIN/TAZOBACTAM [Suspect]
     Active Substance: PIPERACILLIN SODIUM\TAZOBACTAM SODIUM
     Indication: COVID-19
     Dosage: UNK
  18. CYCLOSPORINE. [Interacting]
     Active Substance: CYCLOSPORINE
     Indication: COVID-19
     Dosage: UNK
  19. TOCILIZUMAB. [Suspect]
     Active Substance: TOCILIZUMAB
     Indication: COVID-19
     Dosage: 6 MG/KG, SINGLE
  20. METHYLPREDNISOLONE. [Suspect]
     Active Substance: METHYLPREDNISOLONE
     Dosage: 1 MG/KG(INCREASED)

REACTIONS (8)
  - Drug interaction [Unknown]
  - Drug level increased [Unknown]
  - Off label use [Unknown]
  - Hepatic failure [Fatal]
  - Aspergillus infection [Fatal]
  - COVID-19 [Fatal]
  - Depressed level of consciousness [Unknown]
  - Septic shock [Recovered/Resolved]

NARRATIVE: CASE EVENT DATE: 20200402
